FAERS Safety Report 7796167-8 (Version None)
Quarter: 2011Q4

REPORT INFORMATION
  Report Type: 
  Country: None (occurrence: None)
  Receive Date: 20111004
  Receipt Date: 20110930
  Transmission Date: 20120403
  Serious: Yes (Death, Hospitalization)
  Sender: FDA-Public Use
  Company Number: US-B.I. PHARMACEUTICALS,INC./RIDGEFIELD-2011-BP-19764BP

PATIENT
  Age: 74 Year
  Sex: Female
  Weight: 72 kg

DRUGS (4)
  1. DILTIAZEM HCL [Suspect]
     Indication: ATRIAL FIBRILLATION
     Dates: start: 20110701
  2. NSAID [Suspect]
     Indication: PAIN
  3. EXCEDRIN (MIGRAINE) [Suspect]
  4. PRADAXA [Suspect]
     Indication: ATRIAL FIBRILLATION
     Dosage: 300 MG
     Route: 048
     Dates: start: 20110701, end: 20110808

REACTIONS (5)
  - PULMONARY HAEMORRHAGE [None]
  - PAIN [None]
  - RESPIRATORY FAILURE [None]
  - HAEMOPTYSIS [None]
  - RENAL FAILURE ACUTE [None]
